FAERS Safety Report 24182246 (Version 1)
Quarter: 2024Q3

REPORT INFORMATION
  Report Type: Spontaneous
  Country: IN (occurrence: IN)
  Receive Date: 20240807
  Receipt Date: 20240807
  Transmission Date: 20241017
  Serious: Yes (Other)
  Sender: RANBAXY
  Company Number: IN-SUN PHARMACEUTICAL INDUSTRIES LTD-2024R1-460945

PATIENT
  Sex: Female
  Weight: 1.6 kg

DRUGS (10)
  1. CHOLECALCIFEROL [Suspect]
     Active Substance: CHOLECALCIFEROL
     Indication: Endocardial fibroelastosis
     Dosage: UNK
     Route: 064
  2. CHOLECALCIFEROL [Suspect]
     Active Substance: CHOLECALCIFEROL
     Indication: Atrioventricular block complete
  3. DEXAMETHASONE [Suspect]
     Active Substance: DEXAMETHASONE
     Indication: Endocardial fibroelastosis
     Dosage: 6 MILLIGRAM, DAILY
     Route: 064
  4. DEXAMETHASONE [Suspect]
     Active Substance: DEXAMETHASONE
     Indication: Atrioventricular block complete
     Dosage: 1 MILLIGRAM, DAILY
     Route: 064
  5. ASPIRIN [Suspect]
     Active Substance: ASPIRIN
     Indication: Endocardial fibroelastosis
     Dosage: 75 MILLIGRAM, OD
     Route: 064
  6. ASPIRIN [Suspect]
     Active Substance: ASPIRIN
     Indication: Atrioventricular block complete
  7. HYDROXYCHLOROQUINE [Suspect]
     Active Substance: HYDROXYCHLOROQUINE
     Indication: Endocardial fibroelastosis
     Dosage: 300 MILLIGRAM, OD
     Route: 064
  8. HYDROXYCHLOROQUINE [Suspect]
     Active Substance: HYDROXYCHLOROQUINE
     Indication: Atrioventricular block complete
  9. ALBUTEROL [Suspect]
     Active Substance: ALBUTEROL
     Indication: Endocardial fibroelastosis
     Dosage: 4 MILLIGRAM, OD
     Route: 064
  10. ALBUTEROL [Suspect]
     Active Substance: ALBUTEROL
     Indication: Atrioventricular block complete

REACTIONS (3)
  - Premature baby [Unknown]
  - Low birth weight baby [Unknown]
  - Foetal exposure during pregnancy [Unknown]
